FAERS Safety Report 8615359-9 (Version None)
Quarter: 2012Q3

REPORT INFORMATION
  Report Type: 
  Country: None (occurrence: None)
  Receive Date: 20120823
  Receipt Date: 20120817
  Transmission Date: 20120928
  Serious: Yes (Hospitalization)
  Sender: FDA-Public Use
  Company Number: US-B.I. PHARMACEUTICALS,INC./RIDGEFIELD-2012-BP-20237BP

PATIENT
  Sex: Female
  Weight: 88 kg

DRUGS (2)
  1. IPRATROPIUM BROMIDE [Suspect]
     Indication: ASTHMA
     Dosage: 68 MCG
     Route: 055
  2. COMBIVENT [Suspect]
     Indication: ASTHMA
     Route: 055
     Dates: end: 20100101

REACTIONS (6)
  - TOTAL LUNG CAPACITY DECREASED [None]
  - DYSPNOEA [None]
  - ACTIVITIES OF DAILY LIVING IMPAIRED [None]
  - PNEUMONIA [None]
  - DYSPHONIA [None]
  - INCORRECT DOSE ADMINISTERED [None]
